FAERS Safety Report 19158290 (Version 2)
Quarter: 2021Q2

REPORT INFORMATION
  Report Type: Report from Study
  Country: IN (occurrence: IN)
  Receive Date: 20210420
  Receipt Date: 20210423
  Transmission Date: 20210717
  Serious: Yes (Death)
  Sender: FDA-Public Use
  Company Number: IN-PFIZER INC-2021410399

PATIENT
  Age: 42 Year
  Sex: Male
  Weight: 70.4 kg

DRUGS (5)
  1. LOMOTIL [Concomitant]
     Active Substance: ATROPINE SULFATE\DIPHENOXYLATE HYDROCHLORIDE
     Indication: PROPHYLAXIS AGAINST DIARRHOEA
     Dosage: 2 DF, AS NEEDED
     Route: 048
     Dates: start: 20210323, end: 20210412
  2. COVID?19 VACCINE NOS. [Concomitant]
     Active Substance: COVID-19 VACCINE NOS
     Dosage: SINGLE  DOSE
     Dates: start: 20210411, end: 20210411
  3. DACOMITINIB [Suspect]
     Active Substance: DACOMITINIB
     Indication: NON-SMALL CELL LUNG CANCER METASTATIC
     Dosage: 45 MG, 1X/DAY
     Route: 048
     Dates: start: 20210323
  4. VENUSIA MAX [Concomitant]
     Indication: PROPHYLAXIS
     Dosage: UNK, 3X/DAY
     Route: 061
     Dates: start: 20210323, end: 20210412
  5. NEPRO HP [Concomitant]
     Indication: NUTRITIONAL SUPPLEMENTATION
     Dosage: UNK, 4X/DAY
     Route: 048
     Dates: start: 20210323, end: 20210412

REACTIONS (1)
  - COVID-19 [Fatal]

NARRATIVE: CASE EVENT DATE: 20210413
